FAERS Safety Report 15888252 (Version 1)
Quarter: 2019Q1

REPORT INFORMATION
  Report Type: Spontaneous
  Country: US (occurrence: US)
  Receive Date: 20190130
  Receipt Date: 20190130
  Transmission Date: 20190417
  Serious: Yes (Other)
  Sender: FDA-Public Use
  Company Number: US-RECKITT BENCKISER HEALTHCARE INT LIMITED-RB-81158-2019

PATIENT
  Age: 42 Year
  Sex: Female

DRUGS (1)
  1. MUCINEX DM MAXIMUM STRENGTH [Suspect]
     Active Substance: DEXTROMETHORPHAN HYDROBROMIDE\GUAIFENESIN
     Indication: PRODUCT USED FOR UNKNOWN INDICATION
     Dosage: 1200 MILLIGRAM, SINGLE
     Route: 065
     Dates: start: 20190122, end: 20190122

REACTIONS (7)
  - Pneumonia [Recovering/Resolving]
  - Pallor [Recovering/Resolving]
  - Paraesthesia [Recovering/Resolving]
  - Dysstasia [Recovering/Resolving]
  - Transient aphasia [Recovering/Resolving]
  - Movement disorder [Recovering/Resolving]
  - Feeling abnormal [Recovering/Resolving]

NARRATIVE: CASE EVENT DATE: 201901
